FAERS Safety Report 21363012 (Version 1)
Quarter: 2022Q3

REPORT INFORMATION
  Report Type: Spontaneous
  Country: US (occurrence: None)
  Receive Date: 20220921
  Receipt Date: 20220921
  Transmission Date: 20221027
  Serious: Yes (Other)
  Sender: FDA-Public Use
  Company Number: None

PATIENT
  Sex: Female

DRUGS (9)
  1. TREMFYA [Suspect]
     Active Substance: GUSELKUMAB
     Indication: Psoriasis
     Dosage: OTHER STRENGTH : 100MG/ML, 1ML;?OTHER FREQUENCY : EVERY 8 WEEKS;?
     Route: 058
     Dates: start: 20211119
  2. ALBUTEROL AER HFA [Concomitant]
  3. ASPIRIN CHW [Concomitant]
  4. BTAMETH DIP OIN [Concomitant]
  5. FERROUS SULF TAB EC [Concomitant]
  6. LEVOTHYROXIN TAB [Concomitant]
  7. MEGESTROL AC TAB [Concomitant]
  8. SENNA-TIME TAB [Concomitant]
  9. STOOL SOFTNR CAP [Concomitant]

REACTIONS (4)
  - Depression [None]
  - Hysterectomy [None]
  - Condition aggravated [None]
  - Uterine cancer [None]
